FAERS Safety Report 6377317-7 (Version None)
Quarter: 2009Q3

REPORT INFORMATION
  Report Type: 
  Country: None (occurrence: None)
  Receive Date: 20090925
  Receipt Date: 20090916
  Transmission Date: 20100115
  Serious: Yes (Hospitalization)
  Sender: FDA-Public Use
  Company Number: US-ABBOTT-09P-163-0594924-00

PATIENT
  Sex: Male
  Weight: 98.972 kg

DRUGS (6)
  1. HUMIRA [Suspect]
     Indication: RHEUMATOID ARTHRITIS
     Dates: start: 20080801, end: 20090401
  2. HUMIRA [Suspect]
     Dates: start: 20090601, end: 20090701
  3. METHOTREXATE [Suspect]
     Indication: RHEUMATOID ARTHRITIS
     Dates: end: 20090401
  4. FLUOXETINE [Concomitant]
     Indication: DEPRESSION
  5. FOLIC ACID [Concomitant]
     Indication: RHEUMATOID ARTHRITIS
  6. AMBIEN CR [Concomitant]
     Indication: INSOMNIA

REACTIONS (11)
  - CORONARY ARTERY OCCLUSION [None]
  - DRUG DOSE OMISSION [None]
  - EAR DISCOMFORT [None]
  - FATIGUE [None]
  - LABORATORY TEST ABNORMAL [None]
  - MUSCULOSKELETAL PAIN [None]
  - MYOCARDIAL INFARCTION [None]
  - PAIN IN EXTREMITY [None]
  - PAIN IN JAW [None]
  - RHEUMATOID ARTHRITIS [None]
  - THROAT IRRITATION [None]
